FAERS Safety Report 16590598 (Version 1)
Quarter: 2019Q3

REPORT INFORMATION
  Report Type: Report from Study
  Country: IT (occurrence: IT)
  Receive Date: 20190718
  Receipt Date: 20190718
  Transmission Date: 20191004
  Serious: Yes (Life-Threatening, Hospitalization)
  Sender: FDA-Public Use
  Company Number: PHHO2019IT007391

PATIENT
  Age: 38 Year
  Sex: Female
  Weight: 90 kg

DRUGS (8)
  1. ACICLOVIR [Concomitant]
     Active Substance: ACYCLOVIR
     Indication: PROPHYLAXIS
     Dosage: 400 MG, BID
     Route: 065
     Dates: start: 20190502
  2. LANSOPRAZOLE. [Concomitant]
     Active Substance: LANSOPRAZOLE
     Indication: PROPHYLAXIS
     Dosage: 30 MG, QD
     Route: 065
     Dates: start: 20190502
  3. CGP 41251 [Suspect]
     Active Substance: MIDOSTAURIN
     Indication: LEUKAEMIA
     Dosage: 50 MG, BID (2 PER DAY)
     Route: 048
     Dates: start: 20190512, end: 20190523
  4. NOXAFIL [Concomitant]
     Active Substance: POSACONAZOLE
     Indication: PROPHYLAXIS
     Dosage: 300 MG, QD
     Route: 065
     Dates: start: 20190502, end: 20190513
  5. CYTARABINE. [Suspect]
     Active Substance: CYTARABINE
     Indication: LEUKAEMIA
     Dosage: 365 MG, BID (2 PER DAY)
     Route: 042
     Dates: start: 20190505, end: 20190511
  6. DAUNORUBICIN [Suspect]
     Active Substance: DAUNORUBICIN
     Indication: LEUKAEMIA
     Dosage: 110 MG, QD (1 PER DAY)
     Route: 042
     Dates: start: 20190509, end: 20190511
  7. TAZOCIN [Concomitant]
     Active Substance: PIPERACILLIN SODIUM\TAZOBACTAM SODIUM
     Indication: PYREXIA
     Dosage: 4500 MG, TID
     Route: 065
     Dates: start: 20190502, end: 20190522
  8. RANITIDINE. [Concomitant]
     Active Substance: RANITIDINE
     Indication: PROPHYLAXIS AGAINST GASTROINTESTINAL ULCER
     Dosage: 100 MG, TID
     Route: 065
     Dates: start: 20190505, end: 20190518

REACTIONS (2)
  - Septic shock [Recovered/Resolved]
  - Pneumonia [Recovered/Resolved]

NARRATIVE: CASE EVENT DATE: 20190524
